FAERS Safety Report 9056172 (Version 1)
Quarter: 2013Q1

REPORT INFORMATION
  Report Type: Spontaneous
  Country: US (occurrence: US)
  Receive Date: 20130205
  Receipt Date: 20130205
  Transmission Date: 20140127
  Serious: No
  Sender: FDA-Public Use
  Company Number: US-BAYER-2013-013495

PATIENT
  Age: 21 Year
  Sex: Female

DRUGS (1)
  1. MIRENA [Suspect]
     Dosage: 20 MCG/24HR, CONT
     Route: 015
     Dates: start: 200809

REACTIONS (7)
  - Headache [None]
  - Chest pain [None]
  - Acne [None]
  - Dizziness [None]
  - Nausea [None]
  - Pruritus [None]
  - Rash generalised [None]
